FAERS Safety Report 9373239 (Version 1)
Quarter: 2013Q2

REPORT INFORMATION
  Report Type: Spontaneous
  Country: FR (occurrence: FR)
  Receive Date: 20130627
  Receipt Date: 20130627
  Transmission Date: 20140414
  Serious: Yes (Other)
  Sender: FDA-Public Use
  Company Number: FR-TEVA-415717ISR

PATIENT
  Age: 86 Year
  Sex: Female

DRUGS (2)
  1. FUROSEMIDE [Suspect]
     Dosage: 40 MILLIGRAM DAILY;
  2. SEDATIVE MEDICATIONS [Concomitant]

REACTIONS (1)
  - Dyspnoea [Unknown]
